FAERS Safety Report 12745542 (Version 1)
Quarter: 2016Q3

REPORT INFORMATION
  Report Type: Spontaneous
  Country: JP (occurrence: JP)
  Receive Date: 20160915
  Receipt Date: 20160915
  Transmission Date: 20161109
  Serious: Yes (Other)
  Sender: FDA-Public Use
  Company Number: JP-MYLANLABS-JP2013220819

PATIENT

DRUGS (7)
  1. CISPLATIN. [Suspect]
     Active Substance: CISPLATIN
     Indication: MALIGNANT ASCITES
     Dosage: 80 MG/M2, 2 ADMINISTRATIONS IN 2 WEEK INTERVALS
     Route: 065
     Dates: start: 200905
  2. DOCETAXEL. [Suspect]
     Active Substance: DOCETAXEL
     Indication: MALIGNANT ASCITES
     Dosage: 56MG/BODY, DAY 1; LATER RESTARTED WITH LOW DOSE
     Route: 065
  3. UFT [Concomitant]
     Active Substance: TEGAFUR\URACIL
     Indication: MALIGNANT ASCITES
     Route: 065
  4. GIMERACIL W/OTERACIL POTASSIUM/TEGAFUR [Suspect]
     Active Substance: GIMERACIL\OTERACIL\TEGAFUR
     Indication: MALIGNANT ASCITES
     Dosage: RECEIVED 3 COURSES OF 100 MG/BODY, FOR 2 WEEKS
     Route: 065
  5. DOCETAXEL. [Suspect]
     Active Substance: DOCETAXEL
     Dosage: 40MG/BODY,DAYS 1 AND 7; LATER DOSE INCREASED TO 60MG/BODY
     Route: 065
  6. DOCETAXEL. [Suspect]
     Active Substance: DOCETAXEL
     Dosage: 60MG/BODY, DAY 1
     Route: 065
     Dates: start: 200804
  7. IRINOTECAN [Suspect]
     Active Substance: IRINOTECAN
     Indication: MALIGNANT ASCITES
     Dosage: 80 MG/M2, 2 ADMINISTRATIONS IN 2 WEEK INTERVALS
     Route: 065
     Dates: start: 200905

REACTIONS (4)
  - Stomatitis [Unknown]
  - Decreased appetite [Not Recovered/Not Resolved]
  - Vision blurred [Unknown]
  - Diarrhoea [Not Recovered/Not Resolved]
